FAERS Safety Report 4531217-3 (Version None)
Quarter: 2004Q4

REPORT INFORMATION
  Report Type: 
  Country: None (occurrence: None)
  Receive Date: 20041216
  Receipt Date: 20041118
  Transmission Date: 20050328
  Serious: Yes (Hospitalization)
  Sender: FDA-Public Use
  Company Number: 205193

PATIENT
  Age: 69 Year
  Sex: Male

DRUGS (1)
  1. AVONEX [Suspect]
     Indication: MULTIPLE SCLEROSIS
     Dosage: 30 UG; QW; IM
     Route: 030
     Dates: start: 20040918, end: 20040918

REACTIONS (4)
  - BACTERAEMIA [None]
  - CENTRAL NERVOUS SYSTEM LYMPHOMA [None]
  - CEREBROVASCULAR ACCIDENT [None]
  - VOMITING [None]
